FAERS Safety Report 5750593-7 (Version None)
Quarter: 2008Q2

REPORT INFORMATION
  Report Type: 
  Country: None (occurrence: None)
  Receive Date: 20080523
  Receipt Date: 20080523
  Transmission Date: 20081010
  Serious: No
  Sender: FDA-Public Use
  Company Number: None

PATIENT
  Age: 60 Year
  Sex: Male
  Weight: 90 kg

DRUGS (1)
  1. ENOXAPARIN SODIUM [Suspect]
     Indication: THROMBOSIS PROPHYLAXIS
     Dosage: 80 MG BID SQ
     Route: 058
     Dates: start: 20080427, end: 20080429

REACTIONS (3)
  - ANGINA PECTORIS [None]
  - MUSCULAR WEAKNESS [None]
  - RESPIRATORY DEPRESSION [None]
